FAERS Safety Report 10076013 (Version 1)
Quarter: 2014Q2

REPORT INFORMATION
  Report Type: Spontaneous
  Country: US (occurrence: None)
  Receive Date: 20140410
  Receipt Date: 20140410
  Transmission Date: 20141212
  Serious: Yes (Other)
  Sender: FDA-Public Use
  Company Number: 1356658

PATIENT
  Age: 74 Year
  Sex: Female
  Weight: 65.77 kg

DRUGS (9)
  1. REGLAN [Suspect]
     Indication: GASTROINTESTINAL DISORDER
     Route: 048
     Dates: start: 201003
  2. TRAZODONE HS [Concomitant]
  3. ZOFRAN [Concomitant]
  4. METOPROLOL [Concomitant]
  5. CYMBALTA [Concomitant]
  6. NORCO [Concomitant]
  7. LISINOPRIL [Concomitant]
  8. XANAX [Concomitant]
  9. FOLIC ACID [Concomitant]

REACTIONS (2)
  - Diverticulitis [None]
  - Intestinal resection [None]
